FAERS Safety Report 6223055-0 (Version None)
Quarter: 2009Q2

REPORT INFORMATION
  Report Type: 
  Country: None (occurrence: None)
  Receive Date: 20090611
  Receipt Date: 20090602
  Transmission Date: 20091009
  Serious: Yes (Other)
  Sender: FDA-Public Use
  Company Number: US-PFIZER INC-2005072178

PATIENT
  Sex: Male
  Weight: 61.23 kg

DRUGS (5)
  1. NEURONTIN [Suspect]
     Indication: POST HERPETIC NEURALGIA
     Route: 048
     Dates: start: 20050101, end: 20060101
  2. LYRICA [Suspect]
     Indication: POST HERPETIC NEURALGIA
     Route: 048
     Dates: start: 20060101
  3. DURAGESIC-100 [Suspect]
     Indication: POST HERPETIC NEURALGIA
     Dosage: 1 EVERY 72 HOURS
     Route: 062
     Dates: start: 20051016
  4. METHADONE [Suspect]
     Indication: PAIN
     Dates: start: 20070101
  5. OXYCONTIN [Concomitant]
     Route: 048

REACTIONS (15)
  - ALLODYNIA [None]
  - ASTHENIA [None]
  - BURNING SENSATION [None]
  - CONSTIPATION [None]
  - DRUG EFFECT DECREASED [None]
  - DRUG INEFFECTIVE [None]
  - DRUG TOXICITY [None]
  - DRY MOUTH [None]
  - GYNAECOMASTIA [None]
  - METASTATIC NEOPLASM [None]
  - MUSCLE TWITCHING [None]
  - NERVOUSNESS [None]
  - OEDEMA PERIPHERAL [None]
  - PAIN [None]
  - VISION BLURRED [None]
